FAERS Safety Report 8140274-7 (Version None)
Quarter: 2012Q1

REPORT INFORMATION
  Report Type: 
  Country: None (occurrence: None)
  Receive Date: 20120216
  Receipt Date: 20120210
  Transmission Date: 20120608
  Serious: Yes (Hospitalization)
  Sender: FDA-Public Use
  Company Number: US-VERTEX PHARMACEUTICALS INC.-AE-2012-000727

PATIENT
  Sex: Male
  Weight: 88.53 kg

DRUGS (4)
  1. RIBASPHERE [Concomitant]
     Indication: HEPATITIS C
     Route: 048
     Dates: start: 20111125
  2. IBUPROFEN [Concomitant]
     Indication: HEPATITIS C
  3. INCIVEK [Suspect]
     Indication: HEPATITIS C
     Route: 048
     Dates: start: 20111125
  4. PEGASYS [Concomitant]
     Indication: HEPATITIS C
     Route: 058
     Dates: start: 20111125

REACTIONS (10)
  - WHITE BLOOD CELL COUNT DECREASED [None]
  - RED BLOOD CELL COUNT DECREASED [None]
  - CEREBROVASCULAR ACCIDENT [None]
  - MYALGIA [None]
  - MOOD SWINGS [None]
  - ASTHENIA [None]
  - PLATELET COUNT DECREASED [None]
  - PAIN [None]
  - FALL [None]
  - IRRITABILITY [None]
